FAERS Safety Report 7672015-1 (Version None)
Quarter: 2011Q3

REPORT INFORMATION
  Report Type: 
  Country: None (occurrence: None)
  Receive Date: 20110809
  Receipt Date: 20110804
  Transmission Date: 20111222
  Serious: Yes (Hospitalization, Other)
  Sender: FDA-Public Use
  Company Number: US-BAYER-200814118NA

PATIENT
  Age: 47 Year
  Sex: Male
  Weight: 102 kg

DRUGS (13)
  1. BETASERON [Suspect]
     Indication: SECONDARY PROGRESSIVE MULTIPLE SCLEROSIS
     Dosage: AS USED DOSE: UNK
     Route: 058
     Dates: start: 20090507, end: 20090716
  2. BETASERON [Suspect]
     Route: 058
     Dates: start: 20091212
  3. BETASERON [Suspect]
     Route: 058
     Dates: start: 20090721
  4. BETASERON [Suspect]
     Dosage: 8 MIU, QOD
     Route: 058
  5. BETASERON [Suspect]
     Dosage: AS USED DOSE: UNK
     Route: 058
     Dates: start: 20091102, end: 20091203
  6. ALCOHOL [ETHANOL] [Concomitant]
     Dosage: ^I DRINK TOO MUCH^
  7. CAPTOPRIL [Concomitant]
     Indication: HYPERTENSION
     Dosage: 10 MG X 2
     Route: 048
     Dates: start: 20020401
  8. DEPAKOTE [Concomitant]
     Indication: CONVULSION
     Dosage: 250 MG + 2500 MG
     Route: 048
     Dates: start: 20040401
  9. BETASERON [Suspect]
     Indication: RELAPSING-REMITTING MULTIPLE SCLEROSIS
     Route: 058
     Dates: start: 20000801, end: 20090422
  10. ATENOLOL [Concomitant]
     Indication: HYPERTENSION
     Route: 048
     Dates: start: 20040401
  11. NORVASC [Concomitant]
     Indication: HYPERTENSION
     Route: 048
     Dates: start: 20071201
  12. LOPERAMIDE HCL [Concomitant]
  13. BETASERON [Suspect]

REACTIONS (28)
  - ANGER [None]
  - ARTHRALGIA [None]
  - HEADACHE [None]
  - PAIN [None]
  - ABASIA [None]
  - TRACHEAL DISORDER [None]
  - FRUSTRATION [None]
  - STAPHYLOCOCCAL INFECTION [None]
  - DIZZINESS [None]
  - INFLUENZA [None]
  - GASTROINTESTINAL DISORDER [None]
  - LOSS OF CONSCIOUSNESS [None]
  - COMA [None]
  - OEDEMA PERIPHERAL [None]
  - ALCOHOL POISONING [None]
  - EATING DISORDER [None]
  - OESOPHAGEAL OPERATION [None]
  - MENTAL DISORDER [None]
  - SPEECH DISORDER [None]
  - FALL [None]
  - CONTUSION [None]
  - BLOOD ALCOHOL INCREASED [None]
  - DIARRHOEA HAEMORRHAGIC [None]
  - CONVULSION [None]
  - OESOPHAGEAL DISORDER [None]
  - FAECAL INCONTINENCE [None]
  - DISORIENTATION [None]
  - INJECTION SITE INDURATION [None]
